FAERS Safety Report 11689372 (Version 6)
Quarter: 2016Q3

REPORT INFORMATION
  Report Type: Report from Study
  Country: LB (occurrence: LB)
  Receive Date: 20151102
  Receipt Date: 20160816
  Transmission Date: 20161109
  Serious: Yes (Hospitalization, Other)
  Sender: FDA-Public Use
  Company Number: PHHY2012LB083553

PATIENT
  Age: 40 Year
  Sex: Male

DRUGS (3)
  1. PARIET [Concomitant]
     Active Substance: RABEPRAZOLE SODIUM
     Indication: PRODUCT USED FOR UNKNOWN INDICATION
     Dosage: UNK, PRN (SOS)
     Route: 048
  2. GLIVEC [Suspect]
     Active Substance: IMATINIB MESYLATE
     Indication: CHRONIC MYELOID LEUKAEMIA
     Dosage: 400 MG, QD
     Route: 048
     Dates: start: 2009
  3. ADVIL [Concomitant]
     Active Substance: IBUPROFEN
     Indication: PRODUCT USED FOR UNKNOWN INDICATION
     Dosage: UNK, PRN (SOS)
     Route: 048

REACTIONS (24)
  - Tooth abscess [Recovered/Resolved]
  - Dry skin [Unknown]
  - Vomiting [Unknown]
  - Influenza [Recovering/Resolving]
  - Gastroenteritis [Recovered/Resolved]
  - Arthralgia [Recovered/Resolved]
  - Swelling [Recovered/Resolved]
  - Fatigue [Not Recovered/Not Resolved]
  - Myalgia [Recovered/Resolved]
  - Feeling cold [Recovering/Resolving]
  - Toothache [Recovering/Resolving]
  - Skin infection [Unknown]
  - Neck pain [Not Recovered/Not Resolved]
  - Tooth infection [Recovered/Resolved]
  - Pyrexia [Recovering/Resolving]
  - Diarrhoea [Unknown]
  - Pain in extremity [Not Recovered/Not Resolved]
  - Road traffic accident [Unknown]
  - Skin papilloma [Not Recovered/Not Resolved]
  - Cough [Recovering/Resolving]
  - Bone pain [Not Recovered/Not Resolved]
  - Erythema [Unknown]
  - Weight increased [Unknown]
  - Fatigue [Recovered/Resolved]

NARRATIVE: CASE EVENT DATE: 201209
